FAERS Safety Report 14343438 (Version 1)
Quarter: 2018Q1

REPORT INFORMATION
  Report Type: Spontaneous
  Country: US (occurrence: US)
  Receive Date: 20180101
  Receipt Date: 20180101
  Transmission Date: 20180509
  Serious: Yes (Hospitalization, Other)
  Sender: FDA-Public Use
  Company Number: None

PATIENT
  Sex: Male
  Weight: 11.7 kg

DRUGS (1)
  1. OSELTAMIVIR PHOSPHATE. [Suspect]
     Active Substance: OSELTAMIVIR PHOSPHATE
     Indication: INFLUENZA
     Route: 048
     Dates: start: 20171226, end: 20171229

REACTIONS (7)
  - Hallucination [None]
  - Insomnia [None]
  - Delirium [None]
  - Panic attack [None]
  - Screaming [None]
  - Aggression [None]
  - Crying [None]

NARRATIVE: CASE EVENT DATE: 20171227
